FAERS Safety Report 8380978-4 (Version None)
Quarter: 2012Q2

REPORT INFORMATION
  Report Type: 
  Country: None (occurrence: None)
  Receive Date: 20120523
  Receipt Date: 20120515
  Transmission Date: 20120825
  Serious: Yes (Hospitalization)
  Sender: FDA-Public Use
  Company Number: IT-PFIZER INC-2012118786

PATIENT
  Age: 34 Year
  Sex: Female

DRUGS (1)
  1. GEMCITABINE [Suspect]
     Indication: LEIOMYOSARCOMA
     Dosage: 1000 MG/M2,ON DAYS 1, 8, AND 15 EVERY 4 WEEKS
     Route: 042
     Dates: start: 20080715, end: 20081007

REACTIONS (1)
  - POSTERIOR REVERSIBLE ENCEPHALOPATHY SYNDROME [None]
